FAERS Safety Report 16911060 (Version 1)
Quarter: 2019Q4

REPORT INFORMATION
  Report Type: Report from Study
  Country: None (occurrence: US)
  Receive Date: 20191012
  Receipt Date: 20191012
  Transmission Date: 20200122
  Serious: Yes (Other)
  Sender: FDA-Public Use
  Company Number: US-ABBVIE-19K-163-2955481-00

PATIENT
  Age: 70 Year
  Sex: Female

DRUGS (1)
  1. CREON [Suspect]
     Active Substance: PANCRELIPASE AMYLASE\PANCRELIPASE LIPASE\PANCRELIPASE PROTEASE
     Indication: PRODUCT USED FOR UNKNOWN INDICATION
     Route: 048

REACTIONS (11)
  - Neuroendocrine carcinoma [Unknown]
  - Gallbladder operation [Unknown]
  - Unevaluable event [Unknown]
  - Diarrhoea [Unknown]
  - Metastases to liver [Unknown]
  - Lymphadenectomy [Unknown]
  - Hysterectomy [Unknown]
  - Small intestinal resection [Unknown]
  - Surgery [Unknown]
  - Liver abscess [Unknown]
  - Cerebrovascular accident [Unknown]

NARRATIVE: CASE EVENT DATE: 2000
